FAERS Safety Report 16189888 (Version 2)
Quarter: 2019Q2

REPORT INFORMATION
  Report Type: Report from Study
  Country: US (occurrence: US)
  Receive Date: 20190412
  Receipt Date: 20190505
  Transmission Date: 20190711
  Serious: No
  Sender: FDA-Public Use
  Company Number: PHEH2019US015611

PATIENT
  Age: 67 Year
  Sex: Female

DRUGS (1)
  1. COSENTYX [Suspect]
     Active Substance: SECUKINUMAB
     Indication: PSORIASIS
     Dosage: 300 MG, QW
     Route: 058
     Dates: start: 20190228

REACTIONS (4)
  - Psoriasis [Unknown]
  - Drug ineffective [Not Recovered/Not Resolved]
  - Pruritus [Recovering/Resolving]
  - Skin plaque [Unknown]

NARRATIVE: CASE EVENT DATE: 20190309
